FAERS Safety Report 16078094 (Version 1)
Quarter: 2019Q2

REPORT INFORMATION
  Report Type: Spontaneous
  Country: US (occurrence: US)
  Receive Date: 20190315
  Receipt Date: 20190315
  Transmission Date: 20190711
  Serious: Yes (Hospitalization)
  Sender: FDA-Public Use
  Company Number: None

PATIENT
  Sex: Female

DRUGS (22)
  1. SYMDEKO [Suspect]
     Active Substance: IVACAFTOR\TEZACAFTOR
     Indication: CYSTIC FIBROSIS
     Route: 048
  2. REPLESTA [Concomitant]
     Active Substance: CHOLECALCIFEROL
  3. DIAZEPAM. [Concomitant]
     Active Substance: DIAZEPAM
  4. LORATADINE TAB 10MG [Concomitant]
  5. ALBUTEROL NEB 1.25MG/3 [Concomitant]
  6. SODIUM CHLOR NEB 7% [Concomitant]
  7. NYSYTATIN SUS 100000 [Concomitant]
  8. OMEPRAZOLE. [Concomitant]
     Active Substance: OMEPRAZOLE
  9. TRIMETHOBENZ CAP 300MG [Concomitant]
  10. LORAZEPAM TAB 0.5MG [Concomitant]
  11. PULMOZYME [Concomitant]
     Active Substance: DORNASE ALFA
  12. SYMBICORT AER 80-4.5 [Concomitant]
  13. GAVILYTE -G SOL [Concomitant]
  14. AMOX/K CLAV TAB 875-125 [Concomitant]
  15. LINEZOLID. [Concomitant]
     Active Substance: LINEZOLID
  16. ENOXAPRIN INJ 30/0.3ML [Concomitant]
  17. DOXYCYCL HYV CAP 100MG [Concomitant]
  18. CREON [Concomitant]
     Active Substance: PANCRELIPASE AMYLASE\PANCRELIPASE LIPASE\PANCRELIPASE PROTEASE
  19. AZITHROMYCIN TAB 250MG [Concomitant]
  20. METOCLOPRAM TAB 10MG [Concomitant]
  21. EPINEPHRINE INJ 0.3MG [Concomitant]
  22. RANITIDINE TAB 150MG [Concomitant]

REACTIONS (1)
  - Pneumonia [None]
